FAERS Safety Report 8217320-5 (Version None)
Quarter: 2012Q1

REPORT INFORMATION
  Report Type: 
  Country: None (occurrence: None)
  Receive Date: 20120313
  Receipt Date: 20120302
  Transmission Date: 20120608
  Serious: Yes (Other)
  Sender: FDA-Public Use
  Company Number: AUR-APL-2012-01084

PATIENT
  Age: 62 Year
  Sex: Female

DRUGS (1)
  1. SERTRALINE HYDROCHLORIDE [Suspect]
     Indication: DEPRESSION
     Dosage: 50 MG, 1 D

REACTIONS (9)
  - IRRITABILITY [None]
  - AGITATION [None]
  - HOSTILITY [None]
  - EUPHORIC MOOD [None]
  - BIPOLAR I DISORDER [None]
  - DELUSION [None]
  - RESTLESSNESS [None]
  - HALLUCINATION, AUDITORY [None]
  - MANIA [None]
